FAERS Safety Report 17794838 (Version 13)
Quarter: 2024Q1

REPORT INFORMATION
  Report Type: Report from Study
  Country: CA (occurrence: CA)
  Receive Date: 20200515
  Receipt Date: 20240313
  Transmission Date: 20240410
  Serious: Yes (Other)
  Sender: FDA-Public Use
  Company Number: NVSC2020CA004769

PATIENT
  Age: 53 Year
  Sex: Female

DRUGS (5)
  1. COSENTYX [Suspect]
     Active Substance: SECUKINUMAB
     Indication: Psoriasis
     Dosage: 300 MG
     Route: 058
     Dates: start: 20190617, end: 20190715
  2. COSENTYX [Suspect]
     Active Substance: SECUKINUMAB
     Dosage: 300 MG
     Route: 058
     Dates: start: 20190812, end: 202003
  3. RISANKIZUMAB [Concomitant]
     Active Substance: RISANKIZUMAB
     Indication: Psoriasis
     Dosage: UNK
     Route: 065
     Dates: start: 20200711
  4. CLOBETASOL [Concomitant]
     Active Substance: CLOBETASOL
     Indication: Psoriasis
     Dosage: UNK
     Route: 065
     Dates: start: 20200512, end: 20200630
  5. CLOBETASOL PROPIONATE [Concomitant]
     Active Substance: CLOBETASOL PROPIONATE
     Indication: Product used for unknown indication
     Dosage: UNK
     Route: 065
     Dates: start: 202209

REACTIONS (13)
  - Diarrhoea haemorrhagic [Recovered/Resolved]
  - Diarrhoea haemorrhagic [Recovered/Resolved]
  - Animal bite [Recovered/Resolved]
  - Dermatitis [Recovered/Resolved]
  - Blister [Not Recovered/Not Resolved]
  - Pruritus [Recovered/Resolved]
  - Dizziness [Not Recovered/Not Resolved]
  - Abdominal pain [Not Recovered/Not Resolved]
  - Weight decreased [Recovered/Resolved]
  - Lipoma [Not Recovered/Not Resolved]
  - Borderline glaucoma [Not Recovered/Not Resolved]
  - Dental caries [Recovered/Resolved]
  - Concomitant disease aggravated [Recovered/Resolved]

NARRATIVE: CASE EVENT DATE: 20191101
